FAERS Safety Report 12265866 (Version 1)
Quarter: 2016Q2

REPORT INFORMATION
  Report Type: Report from Study
  Country: US (occurrence: US)
  Receive Date: 20160413
  Receipt Date: 20160413
  Transmission Date: 20160815
  Serious: No
  Sender: FDA-Public Use
  Company Number: ADR-2014-02458

PATIENT
  Age: 63 Year
  Sex: Female

DRUGS (6)
  1. CLONIDINE. [Suspect]
     Active Substance: CLONIDINE
     Dosage: 1,439.6 MCG/DAY
     Route: 037
     Dates: start: 20141113
  2. COMPOUNDED BACLOFEN [Suspect]
     Active Substance: BACLOFEN
     Dosage: 599.8 MCG/DAY
     Route: 037
     Dates: start: 20141029
  3. COMPOUNDED BACLOFEN [Suspect]
     Active Substance: BACLOFEN
     Dosage: 599.9 MCG/DAY
     Route: 037
     Dates: start: 20141113
  4. CLONIDINE. [Suspect]
     Active Substance: CLONIDINE
     Dosage: 1,318.9 MCG/DAY
     Route: 037
     Dates: start: 20140808
  5. CLONIDINE. [Suspect]
     Active Substance: CLONIDINE
     Dosage: 1,439.6 MCG/DAY
     Route: 037
     Dates: start: 20141029
  6. COMPOUNDED BACLOFEN [Suspect]
     Active Substance: BACLOFEN
     Dosage: 549.5 MCG/DAY
     Route: 037
     Dates: start: 20140808

REACTIONS (3)
  - Lethargy [Recovered/Resolved]
  - Muscular weakness [Recovered/Resolved]
  - Laboratory test abnormal [Recovered/Resolved]

NARRATIVE: CASE EVENT DATE: 20140818
